FAERS Safety Report 7433747-3 (Version None)
Quarter: 2011Q2

REPORT INFORMATION
  Report Type: 
  Country: None (occurrence: None)
  Receive Date: 20110424
  Receipt Date: 20110419
  Transmission Date: 20111010
  Serious: No
  Sender: FDA-Public Use
  Company Number: US-B.I. PHARMACEUTICALS,INC./RIDGEFIELD-2011-BP-07173BP

PATIENT
  Age: 79 Year
  Sex: Male

DRUGS (8)
  1. ATENOLOL [Concomitant]
     Dosage: 50 MG
  2. FINASTERIDE [Concomitant]
     Dosage: 5 MG
  3. NORVASC [Concomitant]
     Dosage: 5 MG
  4. METFORMIN [Concomitant]
     Dosage: 500 MG
  5. LOSARTAN POTASSIUM [Concomitant]
     Dosage: 50 MG
  6. ROSEVASTIN [Concomitant]
     Dosage: 3 X WEEK
  7. PRADAXA [Suspect]
     Indication: ATRIAL FIBRILLATION
     Dosage: 300 MG
     Route: 048
     Dates: start: 20110101
  8. TORSEMIDE [Concomitant]
     Dosage: 0.8 MG

REACTIONS (1)
  - URINARY RETENTION [None]
